FAERS Safety Report 18852967 (Version 2)
Quarter: 2021Q1

REPORT INFORMATION
  Report Type: Spontaneous
  Country: US (occurrence: US)
  Receive Date: 20210205
  Receipt Date: 20210226
  Transmission Date: 20210420
  Serious: No
  Sender: FDA-Public Use
  Company Number: US-BIOGEN-2021BI00976095

PATIENT
  Sex: Male

DRUGS (1)
  1. TECFIDERA [Suspect]
     Active Substance: DIMETHYL FUMARATE
     Indication: MULTIPLE SCLEROSIS
     Route: 065
     Dates: start: 20200915, end: 20210209

REACTIONS (5)
  - Pollakiuria [Unknown]
  - Flushing [Recovered/Resolved]
  - Memory impairment [Unknown]
  - Gastric disorder [Recovered/Resolved]
  - Frequent bowel movements [Unknown]
